FAERS Safety Report 17348108 (Version 1)
Quarter: 2020Q1

REPORT INFORMATION
  Report Type: Spontaneous
  Country: US (occurrence: US)
  Receive Date: 20200115
  Receipt Date: 20200115
  Transmission Date: 20200409
  Serious: Yes (Death)
  Sender: FDA-Public Use
  Company Number: None

PATIENT
  Age: 60 Year
  Sex: Female

DRUGS (11)
  1. SILDENAFIL. [Concomitant]
     Active Substance: SILDENAFIL
  2. AMIODARONE + LORAZEPAM [Concomitant]
  3. K-TAB [Concomitant]
     Active Substance: POTASSIUM CHLORIDE
  4. PANTOPRAZOLE [Concomitant]
     Active Substance: PANTOPRAZOLE
  5. MAG OXIDE [Concomitant]
     Active Substance: MAGNESIUM OXIDE
  6. ASPIRIN. [Concomitant]
     Active Substance: ASPIRIN
  7. SILDENAFIL 20MG [Suspect]
     Active Substance: SILDENAFIL
     Indication: CARDIAC FAILURE
     Route: 048
     Dates: start: 20170428, end: 20191213
  8. SPIRONOLACTONE. [Concomitant]
     Active Substance: SPIRONOLACTONE
  9. MULTIVITAMIN [Concomitant]
     Active Substance: VITAMINS
  10. WARFARIN [Concomitant]
     Active Substance: WARFARIN
  11. METOPROLOL TARTRATE. [Concomitant]
     Active Substance: METOPROLOL TARTRATE

REACTIONS (1)
  - Death [None]

NARRATIVE: CASE EVENT DATE: 20200112
